FAERS Safety Report 6876893-5 (Version None)
Quarter: 2010Q2

REPORT INFORMATION
  Report Type: 
  Country: None (occurrence: None)
  Receive Date: 20100616
  Receipt Date: 20100422
  Transmission Date: 20101027
  Serious: No
  Sender: FDA-Public Use
  Company Number: DSA_43035_2010

PATIENT
  Sex: Female

DRUGS (12)
  1. XENAZINE [Suspect]
     Indication: CHOREA
     Dosage: (12.5 MG QD ORAL), (12.5 MG BID ORAL)
     Route: 048
     Dates: start: 20100224, end: 20100309
  2. XENAZINE [Suspect]
     Indication: CHOREA
     Dosage: (12.5 MG QD ORAL), (12.5 MG BID ORAL)
     Route: 048
     Dates: start: 20100310, end: 20100416
  3. ARICEPT [Concomitant]
  4. ASPIRIN [Concomitant]
  5. LEVOTHYROXINE SODIUM [Concomitant]
  6. SPIRONOLACTONE [Concomitant]
  7. LORAZEPAM [Concomitant]
  8. PROVIN [Concomitant]
  9. FORTEO [Concomitant]
  10. CALCIUM [Concomitant]
  11. VITAMINA D [Concomitant]
  12. MULTI-VITAMINS [Concomitant]

REACTIONS (3)
  - DRUG INEFFECTIVE FOR UNAPPROVED INDICATION [None]
  - SOMNOLENCE [None]
  - TREMOR [None]
